FAERS Safety Report 10253549 (Version 4)
Quarter: 2014Q3

REPORT INFORMATION
  Report Type: Spontaneous
  Country: JP (occurrence: JP)
  Receive Date: 20140623
  Receipt Date: 20140801
  Transmission Date: 20150326
  Serious: Yes (Hospitalization)
  Sender: FDA-Public Use
  Company Number: JP-WATSON-2014-13613

PATIENT
  Age: 94 Year
  Sex: Male

DRUGS (5)
  1. RAPAFLO [Suspect]
     Active Substance: SILODOSIN
     Indication: DYSURIA
     Dosage: 4 MG, BID
     Route: 048
     Dates: start: 20140602, end: 20140606
  2. LENDORMIN [Concomitant]
     Active Substance: BROTIZOLAM
     Indication: INSOMNIA
     Dosage: 0.25 MG, UNKNOWN
     Route: 048
  3. PURSENNID                          /00142207/ [Concomitant]
     Active Substance: SENNOSIDES A AND B CALCIUM
     Indication: CONSTIPATION
     Dosage: 36 MG, UNKNOWN
     Route: 048
  4. BIOFERMIN                          /01617201/ [Concomitant]
     Active Substance: BACILLUS SUBTILIS\LACTOBACILLUS ACIDOPHILUS\STREPTOCOCCUS FAECAIS
     Indication: CONSTIPATION
     Dosage: 3 DF, UNKNOWN
     Route: 048
  5. RAPAFLO [Suspect]
     Active Substance: SILODOSIN
     Dosage: 28 MG, SINGLE
     Route: 048
     Dates: start: 20140607, end: 20140607

REACTIONS (3)
  - Medication error [Unknown]
  - Loss of consciousness [Recovered/Resolved]
  - Overdose [Recovering/Resolving]

NARRATIVE: CASE EVENT DATE: 20140607
